FAERS Safety Report 19097409 (Version 1)
Quarter: 2021Q2

REPORT INFORMATION
  Report Type: Spontaneous
  Country: CN (occurrence: CN)
  Receive Date: 20210406
  Receipt Date: 20210406
  Transmission Date: 20210717
  Serious: Yes (Other)
  Sender: FDA-Public Use
  Company Number: CN-PURDUE-USA-2021-0240952

PATIENT
  Age: 84 Year
  Sex: Male

DRUGS (6)
  1. MS CONTIN [Suspect]
     Active Substance: MORPHINE SULFATE
     Dosage: 10 MG, Q12H
     Route: 048
     Dates: start: 20210315, end: 20210316
  2. RABEPRAZOLE SODIUM. [Concomitant]
     Active Substance: RABEPRAZOLE SODIUM
     Indication: PANCREATIC NEOPLASM
     Dosage: 20 MG, DAILY
     Route: 048
     Dates: start: 20210225, end: 20210316
  3. MS CONTIN [Suspect]
     Active Substance: MORPHINE SULFATE
     Dosage: 10 MG, NOCTE
     Route: 048
     Dates: start: 20210226, end: 20210315
  4. RABEPRAZOLE SODIUM. [Concomitant]
     Active Substance: RABEPRAZOLE SODIUM
     Indication: PROPHYLAXIS AGAINST GASTROINTESTINAL ULCER
  5. MS CONTIN [Suspect]
     Active Substance: MORPHINE SULFATE
     Indication: PRODUCT USED FOR UNKNOWN INDICATION
     Dosage: 20 MG, Q12H
     Route: 048
     Dates: start: 20210315, end: 20210316
  6. COMPOUND AMINO ACID (18AA)         /06796401/ [Concomitant]
     Active Substance: AMINO ACIDS, SOURCE UNSPECIFIED
     Indication: MALNUTRITION
     Dosage: 250 ML, DAILY
     Route: 041
     Dates: start: 20210225, end: 20210317

REACTIONS (3)
  - Delirium [Unknown]
  - Bedridden [Unknown]
  - Mood altered [Unknown]

NARRATIVE: CASE EVENT DATE: 20210315
